FAERS Safety Report 5525653-6 (Version None)
Quarter: 2007Q4

REPORT INFORMATION
  Report Type: 
  Country: None (occurrence: None)
  Receive Date: 20071126
  Receipt Date: 20071114
  Transmission Date: 20080405
  Serious: Yes (Other)
  Sender: FDA-Public Use
  Company Number: US-AMGEN-US240430

PATIENT
  Sex: Male
  Weight: 78.1 kg

DRUGS (2)
  1. PROCRIT [Suspect]
     Indication: ANAEMIA
     Route: 065
     Dates: start: 20040501, end: 20040501
  2. RIBAVIRIN [Concomitant]

REACTIONS (1)
  - OPTIC NERVE DISORDER [None]
